FAERS Safety Report 7549021-0 (Version None)
Quarter: 2011Q2

REPORT INFORMATION
  Report Type: 
  Country: None (occurrence: None)
  Receive Date: 20110615
  Receipt Date: 20110608
  Transmission Date: 20111010
  Serious: Yes (Death, Other)
  Sender: FDA-Public Use
  Company Number: CN-ROCHE-781154

PATIENT
  Sex: Male

DRUGS (3)
  1. TACROLIMUS [Suspect]
     Indication: RENAL TRANSPLANT
     Route: 065
     Dates: start: 20110219
  2. MYCOPHENOLATE MEFETIL [Suspect]
     Indication: RENAL TRANSPLANT
     Route: 048
     Dates: start: 20110219
  3. PREDNISONE [Suspect]
     Indication: RENAL TRANSPLANT
     Route: 065
     Dates: start: 20110219

REACTIONS (2)
  - HEPATIC ENCEPHALOPATHY [None]
  - HEPATIC FUNCTION ABNORMAL [None]
